FAERS Safety Report 14653729 (Version 2)
Quarter: 2018Q3

REPORT INFORMATION
  Report Type: Spontaneous
  Country: US (occurrence: US)
  Receive Date: 20180319
  Receipt Date: 20180808
  Transmission Date: 20181010
  Serious: No
  Sender: FDA-Public Use
  Company Number: US-PFIZER INC-2018107853

PATIENT
  Age: 75 Year
  Sex: Female
  Weight: 92.99 kg

DRUGS (6)
  1. IBRANCE [Suspect]
     Active Substance: PALBOCICLIB
     Dosage: 100 MG, UNK
     Dates: start: 201806
  2. MORPHINE SULFATE. [Concomitant]
     Active Substance: MORPHINE SULFATE
     Indication: PAIN
     Dosage: 15 MG, 3X/DAY [EVERY 8 HOURS]
     Route: 048
     Dates: start: 201805
  3. HYDROCODONE [Concomitant]
     Active Substance: HYDROCODONE
     Indication: PAIN
     Dosage: 2 DF, AS NEEDED (EVERY 4 HOURS AS NEEDED)
     Route: 048
     Dates: start: 201805
  4. IBRANCE [Suspect]
     Active Substance: PALBOCICLIB
     Dosage: UNK (STARTED A NEW CYCLE OF 21 DAYS OR A NEW PACK OF THE PRODUCT)
     Dates: start: 20180716, end: 20180728
  5. IBRANCE [Suspect]
     Active Substance: PALBOCICLIB
     Dosage: 100 MG, CYCLIC (21 DAYS ON AND 7 DAYS OFF)
     Route: 048
     Dates: start: 201805, end: 20180728
  6. IBRANCE [Suspect]
     Active Substance: PALBOCICLIB
     Indication: BREAST CANCER METASTATIC
     Dosage: 125 MG, UNK
     Dates: start: 201805

REACTIONS (7)
  - Decreased appetite [Recovering/Resolving]
  - Lethargy [Recovered/Resolved]
  - Nausea [Recovered/Resolved]
  - Neoplasm progression [Unknown]
  - Dysgeusia [Unknown]
  - Dehydration [Recovered/Resolved with Sequelae]
  - Diarrhoea [Recovered/Resolved]

NARRATIVE: CASE EVENT DATE: 201805
